FAERS Safety Report 4463008-6 (Version None)
Quarter: 2004Q3

REPORT INFORMATION
  Report Type: 
  Country: None (occurrence: None)
  Receive Date: 20040930
  Receipt Date: 20040806
  Transmission Date: 20050211
  Serious: Yes (Life-Threatening, Hospitalization)
  Sender: FDA-Public Use
  Company Number: US-BRISTOL-MYERS SQUIBB COMPANY-12663365

PATIENT
  Age: 69 Year
  Sex: Female

DRUGS (3)
  1. ERBITUX [Suspect]
     Indication: COLORECTAL CANCER
     Dosage: 1ST INFUSION, THERAPY DURATION 0-3 MINS.
     Route: 042
     Dates: start: 20040805, end: 20040805
  2. DEXAMETHASONE [Concomitant]
     Indication: PREMEDICATION
     Route: 042
     Dates: start: 20040805, end: 20040805
  3. ZOFRAN [Concomitant]
     Indication: PREMEDICATION
     Dates: start: 20040805, end: 20040805

REACTIONS (3)
  - CONVULSION [None]
  - INFUSION RELATED REACTION [None]
  - RESPIRATORY ARREST [None]
